FAERS Safety Report 5270255-2 (Version None)
Quarter: 2007Q1

REPORT INFORMATION
  Report Type: 
  Country: None (occurrence: None)
  Receive Date: 20070320
  Receipt Date: 20070308
  Transmission Date: 20070707
  Serious: Yes (Death)
  Sender: FDA-Public Use
  Company Number: US-PFIZER INC-2005107362

PATIENT
  Sex: Male

DRUGS (22)
  1. NEURONTIN [Suspect]
     Indication: BIPOLAR DISORDER
     Dates: start: 19961217, end: 20030701
  2. NEURONTIN [Suspect]
     Indication: MIGRAINE
  3. NEURONTIN [Suspect]
     Indication: RESTLESS LEGS SYNDROME
  4. NEURONTIN [Suspect]
     Indication: PAIN
  5. ZITHROMAX [Concomitant]
     Dates: start: 20000225
  6. LAMISIL [Concomitant]
     Dates: start: 20011129
  7. LEVAQUIN [Concomitant]
  8. METHYLPREDNISONE [Concomitant]
  9. NYSTATIN [Concomitant]
  10. XANAX [Concomitant]
  11. OXYCONTIN [Concomitant]
  12. VICODIN ES [Concomitant]
  13. ALL OTHER THERAPEUTIC PRODUCTS [Concomitant]
  14. VALIUM [Concomitant]
  15. LORCET-HD [Concomitant]
  16. AMARYL [Concomitant]
  17. ALBUTEROL [Concomitant]
  18. CLARITIN-D [Concomitant]
  19. CELEXA [Concomitant]
     Dates: start: 20010306, end: 20010906
  20. PRINIVIL [Concomitant]
  21. PAXIL [Concomitant]
  22. PROMETHAZINE W/ CODEINE [Concomitant]
     Dates: start: 20010128

REACTIONS (7)
  - COMPLETED SUICIDE [None]
  - DEPRESSION [None]
  - DRUG INEFFECTIVE [None]
  - GUN SHOT WOUND [None]
  - LOSS OF CONTROL OF LEGS [None]
  - NEUROPATHY [None]
  - PAIN IN EXTREMITY [None]
